FAERS Safety Report 6282858-7 (Version None)
Quarter: 2009Q4

REPORT INFORMATION
  Report Type: 
  Country: None (occurrence: None)
  Receive Date: 20090722
  Receipt Date: 20090722
  Transmission Date: 20100525
  Serious: Yes (Other)
  Sender: FDA-Public Use
  Company Number: None

PATIENT
  Age: 17 Year
  Sex: Male

DRUGS (1)
  1. MINOCYCLINE HCL [Suspect]
     Dosage: 100 MG BID
     Dates: start: 20051013, end: 20070401

REACTIONS (3)
  - AUTOIMMUNE HEPATITIS [None]
  - LIVER INJURY [None]
  - PRODUCT CONTAMINATION PHYSICAL [None]
